FAERS Safety Report 8465654-1 (Version None)
Quarter: 2012Q2

REPORT INFORMATION
  Report Type: 
  Country: None (occurrence: None)
  Receive Date: 20120626
  Receipt Date: 20120616
  Transmission Date: 20120825
  Serious: Yes (Other)
  Sender: FDA-Public Use
  Company Number: US-ABBOTT-12P-163-0947260-00

PATIENT
  Age: 59 Year
  Sex: Male

DRUGS (6)
  1. HUMIRA [Suspect]
     Indication: ANKYLOSING SPONDYLITIS
     Dates: start: 20111203
  2. ALPRAZOLAM [Concomitant]
     Indication: PRODUCT USED FOR UNKNOWN INDICATION
     Dosage: 1 MG BID OR TID AS NEEDED
  3. VITAMIN D [Concomitant]
     Indication: PRODUCT USED FOR UNKNOWN INDICATION
     Dosage: DAILY
  4. TAMSULOSIN HCL [Concomitant]
     Indication: PRODUCT USED FOR UNKNOWN INDICATION
     Dosage: 2 TABLETS EVERY EVENING
  5. BUPROPIONE [Concomitant]
     Indication: PRODUCT USED FOR UNKNOWN INDICATION
     Dosage: 1-200 MG TAB AND 1-150 MG TAB
  6. MELOXICAM [Concomitant]
     Indication: PRODUCT USED FOR UNKNOWN INDICATION

REACTIONS (12)
  - TREMOR [None]
  - DEVICE MALFUNCTION [None]
  - SCIATICA [None]
  - BACK PAIN [None]
  - RHINORRHOEA [None]
  - COUGH [None]
  - SNEEZING [None]
  - SENSORY DISTURBANCE [None]
  - SOMNOLENCE [None]
  - HYPOAESTHESIA [None]
  - TRAUMATIC LUMBAR PUNCTURE [None]
  - INJECTION SITE HAEMORRHAGE [None]
